FAERS Safety Report 7331126-0 (Version None)
Quarter: 2011Q1

REPORT INFORMATION
  Report Type: 
  Country: None (occurrence: None)
  Receive Date: 20110228
  Receipt Date: 20110228
  Transmission Date: 20110831
  Serious: Yes (Life-Threatening, Disabling)
  Sender: FDA-Public Use
  Company Number: None

PATIENT
  Sex: Male
  Weight: 70.3075 kg

DRUGS (2)
  1. MELLARIL [Suspect]
     Indication: DEPRESSION
     Dosage: 50 MG 2-4 T DAY ORAL
     Route: 048
     Dates: start: 19820501, end: 19950601
  2. MOBAN [Suspect]
     Indication: DEPRESSION
     Dosage: 5 MG 2-4 T DAY ORAL
     Route: 048
     Dates: start: 19801001, end: 19820501

REACTIONS (11)
  - MUSCLE SPASMS [None]
  - TENSION [None]
  - DEPRESSION [None]
  - GLUCOSE TOLERANCE IMPAIRED [None]
  - EXTRAPYRAMIDAL DISORDER [None]
  - DYSKINESIA [None]
  - CONVULSION [None]
  - AKATHISIA [None]
  - WEIGHT INCREASED [None]
  - DRUG INEFFECTIVE [None]
  - INSOMNIA [None]
